FAERS Safety Report 12578437 (Version 2)
Quarter: 2016Q3

REPORT INFORMATION
  Report Type: Spontaneous
  Country: GB (occurrence: GB)
  Receive Date: 20160721
  Receipt Date: 20160726
  Transmission Date: 20161109
  Serious: Yes (Life-Threatening, Hospitalization, Other)
  Sender: FDA-Public Use
  Company Number: GB-DRREDDYS-GER/UKI/16/0081510

PATIENT
  Age: 21 Year
  Sex: Male
  Weight: 80 kg

DRUGS (4)
  1. RISPERIDONE. [Concomitant]
     Active Substance: RISPERIDONE
     Indication: PRODUCT USED FOR UNKNOWN INDICATION
     Route: 048
  2. SEPTRIN [Suspect]
     Active Substance: SULFAMETHOXAZOLE\TRIMETHOPRIM
     Indication: PRODUCT USED FOR UNKNOWN INDICATION
     Dates: start: 20160618
  3. LAMOTRIGINE. [Suspect]
     Active Substance: LAMOTRIGINE
     Indication: DEPRESSED MOOD
     Route: 048
     Dates: start: 20160618, end: 20160702
  4. CITALOPRAM [Concomitant]
     Active Substance: CITALOPRAM HYDROBROMIDE
     Indication: DEPRESSED MOOD
     Dosage: INCREASED TO TWICE DAILY
     Route: 048

REACTIONS (8)
  - Blister [Unknown]
  - Intentional product misuse [Unknown]
  - Toxic epidermal necrolysis [Not Recovered/Not Resolved]
  - Oropharyngeal pain [Unknown]
  - Stevens-Johnson syndrome [Not Recovered/Not Resolved]
  - Expired product administered [Unknown]
  - Rash erythematous [Unknown]
  - Oral mucosal blistering [Unknown]

NARRATIVE: CASE EVENT DATE: 20160626
